FAERS Safety Report 17967190 (Version 1)
Quarter: 2020Q3

REPORT INFORMATION
  Report Type: Spontaneous
  Country: ES (occurrence: ES)
  Receive Date: 20200701
  Receipt Date: 20200701
  Transmission Date: 20201103
  Serious: Yes (Other)
  Sender: FDA-Public Use
  Company Number: ES-BAYER-2020-128466

PATIENT
  Sex: Female

DRUGS (1)
  1. INTERFERON BETA ? 1B [Suspect]
     Active Substance: INTERFERON BETA-1B
     Indication: MULTIPLE SCLEROSIS
     Dosage: UNK

REACTIONS (2)
  - Maternal exposure during pregnancy [None]
  - Oligohydramnios [None]
